FAERS Safety Report 18184431 (Version 2)
Quarter: 2020Q3

REPORT INFORMATION
  Report Type: Report from Study
  Country: KR (occurrence: KR)
  Receive Date: 20200824
  Receipt Date: 20200924
  Transmission Date: 20201103
  Serious: Yes (Life-Threatening, Hospitalization)
  Sender: FDA-Public Use
  Company Number: KR-CELLTRION INC.-2020KR025517

PATIENT

DRUGS (24)
  1. TRUXIMA [Suspect]
     Active Substance: RITUXIMAB-ABBS
     Dosage: 735 MG, CYCLIC INDUCTION CHEMOTHERAPY EVERY 2 WEEKS
     Route: 042
     Dates: start: 20200526
  2. TRUXIMA [Suspect]
     Active Substance: RITUXIMAB-ABBS
     Dosage: 745 MG, CYCLIC INDUCTION CHEMOTHERAPY EVERY 2 WEEKS, QD ON DAY 1, 500 MG/M2 + 5%DW 500 ML IVF, BEGIN
     Route: 042
     Dates: start: 20200623
  3. METHOTREXATE. [Suspect]
     Active Substance: METHOTREXATE
     Indication: DIFFUSE LARGE B-CELL LYMPHOMA
     Dosage: 500 MG/M2 + 5%DW 200 ML IV OVER 15 MINUTES, QD DAY 2 OF INDUCTION THERAPY EVERY 2 WEEKS
     Route: 042
     Dates: start: 20200624
  4. DEXTROSE WATER [Concomitant]
     Dosage: TRUXIMA 500 MG/M2 + 5%DW 500 ML IVF
     Route: 042
  5. ASPIRIN PROTECT [Concomitant]
     Active Substance: ASPIRIN
     Indication: DYSLIPIDAEMIA
     Dosage: 100 MG, QD
     Route: 048
     Dates: start: 20200826
  6. KEPPRA [Concomitant]
     Active Substance: LEVETIRACETAM
     Indication: PROPHYLAXIS
     Dosage: 500 MG, BID
     Route: 048
     Dates: start: 20200429, end: 20200711
  7. TAMIPOOL [Concomitant]
     Active Substance: VITAMINS
     Indication: PROPHYLAXIS
     Dosage: 1 VIAL, FREQUENCY: 1
     Route: 042
     Dates: start: 20200709, end: 20200805
  8. THIAMINE. [Concomitant]
     Active Substance: THIAMINE
     Indication: PROPHYLAXIS
     Dosage: 250 MG, QD
     Route: 042
     Dates: start: 20200714, end: 20200805
  9. TRUXIMA [Suspect]
     Active Substance: RITUXIMAB-ABBS
     Indication: DIFFUSE LARGE B-CELL LYMPHOMA
     Dosage: 750 MG, CYCLIC INDUCTION CHEMOTHERAPY EVERY 2 WEEKS
     Route: 042
     Dates: start: 20200512
  10. DEXTROSE WATER [Concomitant]
     Dosage: METHOTREXATE 500 MG/M2 + 5%DW 200 ML IV OVER 15 MINUTES
     Route: 042
  11. LEUCOVORIN [FOLINIC ACID] [Concomitant]
     Active Substance: LEUCOVORIN
     Dosage: LEUCOVORIN RESCUE
  12. KEPPRA [Concomitant]
     Active Substance: LEVETIRACETAM
     Dosage: 500 MG, BID
     Route: 042
     Dates: start: 20200712
  13. NEXIUM [Concomitant]
     Active Substance: ESOMEPRAZOLE MAGNESIUM
     Indication: PROPHYLAXIS
     Dosage: 10 MG, QD
     Route: 048
     Dates: start: 20200429, end: 20200711
  14. DEXTROSE WATER [Concomitant]
     Dosage: METHOTREXATE 3000 MG/M2 + 5%DW 500 ML IVF OVER 3 HRS
     Route: 042
  15. LIPITOR [Concomitant]
     Active Substance: ATORVASTATIN CALCIUM
     Indication: DYSLIPIDAEMIA
     Dosage: 40 MG, QD
     Route: 048
     Dates: start: 20200826
  16. DICAMAX [Concomitant]
     Indication: OSTEOPOROSIS
     Dosage: 1 DF, QD
     Route: 048
     Dates: start: 20200529, end: 20200713
  17. METHOTREXATE. [Suspect]
     Active Substance: METHOTREXATE
     Dosage: 3000 MG/M2 + 5%DW 500 ML IVF OVER 3 HRS, QD DAY 2 OF INDUCTION THERAPY EVERY 2 WEEKS
     Route: 042
     Dates: start: 20200624
  18. NEXIUM [Concomitant]
     Active Substance: ESOMEPRAZOLE MAGNESIUM
     Dosage: 40 MG, QD
     Route: 042
     Dates: start: 20200712
  19. MEGACE F [Concomitant]
     Indication: DECREASED APPETITE
     Dosage: 5 ML, QD
     Route: 048
     Dates: start: 20200609, end: 20200713
  20. SODIUM BICARBONATE. [Concomitant]
     Active Substance: SODIUM BICARBONATE
     Indication: PROPHYLAXIS
     Dosage: 40 ML, BID
     Route: 042
     Dates: start: 20200713, end: 20200720
  21. TRUXIMA [Suspect]
     Active Substance: RITUXIMAB-ABBS
     Dosage: 740 MG, CYCLIC INDUCTION CHEMOTHERAPY EVERY 2 WEEKS
     Route: 042
     Dates: start: 20200609
  22. CRESTOR [Concomitant]
     Active Substance: ROSUVASTATIN CALCIUM
     Indication: DYSLIPIDAEMIA
     Dosage: 0.75 MG, QD
     Route: 048
     Dates: end: 20200713
  23. FOLIC ACID. [Concomitant]
     Active Substance: FOLIC ACID
     Indication: ANAEMIA
     Dosage: 1 MG, QD
     Route: 048
     Dates: start: 20200703, end: 20200713
  24. WINUF PERI [Concomitant]
     Active Substance: AMINO ACIDS\DEXTROSE\ELECTROLYTES NOS\SOYBEAN OIL\VITAMINS
     Indication: PROPHYLAXIS
     Dosage: 1085 ML, QD
     Route: 042
     Dates: start: 20200709, end: 20200805

REACTIONS (7)
  - Stomatitis [Recovered/Resolved]
  - Prescribed overdose [Unknown]
  - Platelet count decreased [Recovered/Resolved]
  - Pneumonia fungal [Recovered/Resolved]
  - Neutrophil count decreased [Recovered/Resolved]
  - Off label use [Unknown]
  - Product use issue [Unknown]

NARRATIVE: CASE EVENT DATE: 20200702
